APPROVED DRUG PRODUCT: COSMEGEN
Active Ingredient: DACTINOMYCIN
Strength: 0.5MG/VIAL **Federal Register determination that product was not discontinued or withdrawn for safety or effectiveness reasons**
Dosage Form/Route: INJECTABLE;INJECTION
Application: N050682 | Product #001
Applicant: RECORDATI RARE DISEASES INC
Approved: Approved Prior to Jan 1, 1982 | RLD: Yes | RS: No | Type: DISCN